FAERS Safety Report 8808758 (Version 3)
Quarter: 2014Q2

REPORT INFORMATION
  Report Type: Spontaneous
  Country: US (occurrence: US)
  Receive Date: 20120926
  Receipt Date: 20140606
  Transmission Date: 20141212
  Serious: No
  Sender: FDA-Public Use
  Company Number: US-ASTRAZENECA-2012SE53263

PATIENT
  Age: 77 Year
  Sex: Female
  Weight: 69.4 kg

DRUGS (12)
  1. NEXIUM [Suspect]
     Indication: DYSPEPSIA
     Route: 048
     Dates: start: 2001, end: 20131114
  2. NEXIUM [Suspect]
     Indication: GASTROOESOPHAGEAL REFLUX DISEASE
     Route: 048
     Dates: start: 2001, end: 20131114
  3. NEXIUM [Suspect]
     Indication: DYSPEPSIA
     Route: 048
  4. NEXIUM [Suspect]
     Indication: GASTROOESOPHAGEAL REFLUX DISEASE
     Route: 048
  5. ALPRAZOLAM [Suspect]
     Indication: NERVOUS SYSTEM DISORDER
     Route: 065
  6. BENADRYL [Suspect]
     Route: 065
  7. AMBIEN [Concomitant]
     Indication: SLEEP DISORDER
  8. PAXIL [Concomitant]
     Route: 048
  9. AMLODIPINE BESYLATE [Concomitant]
     Indication: CARDIAC DISORDER
     Route: 048
  10. ASPIRIN [Concomitant]
     Indication: ELDERLY
     Route: 048
  11. ZOLPIDEM [Concomitant]
     Indication: SLEEP DISORDER
     Route: 048
  12. VENLAFAXINE ER [Concomitant]
     Dosage: 37.5 DAILY

REACTIONS (18)
  - Dysphagia [Unknown]
  - Upper respiratory tract congestion [Unknown]
  - Sleep disorder [Unknown]
  - Restlessness [Unknown]
  - Frustration [Unknown]
  - Asthenia [Unknown]
  - Hypoacusis [Unknown]
  - Weight decreased [Not Recovered/Not Resolved]
  - Dyspepsia [Not Recovered/Not Resolved]
  - Malaise [Unknown]
  - Malaise [Unknown]
  - Nausea [Unknown]
  - Formication [Recovered/Resolved]
  - Intentional product misuse [Unknown]
  - Intentional product misuse [Unknown]
  - Intercepted drug dispensing error [Unknown]
  - Drug dose omission [Recovered/Resolved]
  - Drug ineffective [Not Recovered/Not Resolved]
